FAERS Safety Report 8103153-7 (Version None)
Quarter: 2012Q1

REPORT INFORMATION
  Report Type: 
  Country: None (occurrence: None)
  Receive Date: 20120201
  Receipt Date: 20120124
  Transmission Date: 20120608
  Serious: Yes (Hospitalization, Other)
  Sender: FDA-Public Use
  Company Number: US-ACTELION-A-US2012-59681

PATIENT

DRUGS (18)
  1. CEFTIN [Concomitant]
  2. LASIX [Concomitant]
  3. TRACLEER [Suspect]
     Dosage: UNK
     Route: 048
     Dates: start: 20060712
  4. ALBUTEROL [Concomitant]
  5. TESSALON [Concomitant]
  6. PRILOSEC [Concomitant]
  7. CALCIUM CHANNEL BLOCKERS [Concomitant]
  8. METOPROLOL TARTRATE [Concomitant]
  9. POTASSIUM CHLORIDE [Concomitant]
  10. GUAIFENESIN [Concomitant]
  11. NASONEX [Concomitant]
  12. TRACLEER [Suspect]
     Indication: PULMONARY ARTERIAL HYPERTENSION
     Dosage: 125 MG, BID
     Route: 048
     Dates: start: 20070101
  13. LORTAB [Concomitant]
  14. CARDIZEM [Concomitant]
  15. NITROGLYCERIN [Concomitant]
  16. CLARITIN [Concomitant]
  17. ASPIRIN [Concomitant]
  18. ADVAIR DISKUS 100/50 [Concomitant]

REACTIONS (3)
  - DYSPNOEA [None]
  - ASTHMA [None]
  - LOBAR PNEUMONIA [None]
